FAERS Safety Report 17743315 (Version 1)
Quarter: 2020Q2

REPORT INFORMATION
  Report Type: Spontaneous
  Country: FR (occurrence: FR)
  Receive Date: 20200504
  Receipt Date: 20200504
  Transmission Date: 20200714
  Serious: Yes (Other)
  Sender: FDA-Public Use
  Company Number: NVSC2020FR120481

PATIENT
  Age: 58 Year
  Sex: Male
  Weight: 83 kg

DRUGS (5)
  1. RASAGILINE. [Suspect]
     Active Substance: RASAGILINE
     Indication: PARKINSON^S DISEASE
     Dosage: 1 MG, QD
     Route: 048
     Dates: start: 201809
  2. LEVODOPA BENSERAZID BETA [Suspect]
     Active Substance: BENSERAZIDE HYDROCHLORIDE\LEVODOPA
     Indication: PARKINSON^S DISEASE
     Dosage: 1 DF, QD
     Route: 048
     Dates: start: 201906
  3. LEVODOPA/CARBIDOPA TEVA [Suspect]
     Active Substance: CARBIDOPA\LEVODOPA
     Indication: PARKINSON^S DISEASE
     Dosage: 4 DF, QD
     Route: 048
     Dates: start: 20190506
  4. DOMPERIDONE [Concomitant]
     Active Substance: DOMPERIDONE
     Indication: PRODUCT USED FOR UNKNOWN INDICATION
     Dosage: UNK
     Route: 065
  5. ROPINIROL TEVA [Suspect]
     Active Substance: ROPINIROLE HYDROCHLORIDE
     Indication: PARKINSON^S DISEASE
     Dosage: 1 DF, QD
     Route: 048
     Dates: start: 20190506

REACTIONS (2)
  - Gambling disorder [Not Recovered/Not Resolved]
  - Impulse-control disorder [Not Recovered/Not Resolved]

NARRATIVE: CASE EVENT DATE: 201905
